FAERS Safety Report 25831239 (Version 1)
Quarter: 2025Q3

REPORT INFORMATION
  Report Type: Spontaneous
  Country: CN (occurrence: CN)
  Receive Date: 20250922
  Receipt Date: 20250922
  Transmission Date: 20251020
  Serious: Yes (Hospitalization, Other)
  Sender: PFIZER
  Company Number: CN-TAKEDA-2025TUS080467

PATIENT
  Age: 72 Year
  Sex: Male
  Weight: 67 kg

DRUGS (2)
  1. PANTOPRAZOLE [Suspect]
     Active Substance: PANTOPRAZOLE
     Indication: Gastroenteritis
     Dosage: 20 MILLIGRAM, QD
     Route: 048
     Dates: start: 20250831, end: 20250903
  2. PANTOPRAZOLE [Suspect]
     Active Substance: PANTOPRAZOLE
     Indication: Gastroenteritis
     Dosage: 40 MILLIGRAM, QD
     Route: 042
     Dates: start: 20250827, end: 20250831

REACTIONS (4)
  - Inappropriate antidiuretic hormone secretion [Recovering/Resolving]
  - Hyponatraemia [Recovering/Resolving]
  - Hypokalaemia [Recovering/Resolving]
  - Hypochloraemia [Recovering/Resolving]

NARRATIVE: CASE EVENT DATE: 20250828
